FAERS Safety Report 15506761 (Version 1)
Quarter: 2018Q4

REPORT INFORMATION
  Report Type: Spontaneous
  Country: FR (occurrence: FR)
  Receive Date: 20181016
  Receipt Date: 20181016
  Transmission Date: 20190205
  Serious: Yes (Life-Threatening, Hospitalization)
  Sender: FDA-Public Use
  Company Number: PHHY2018FR127353

PATIENT
  Age: 42 Year
  Sex: Male
  Weight: 74 kg

DRUGS (8)
  1. CLOMIPRAMINE HYDROCHLORIDE. [Suspect]
     Active Substance: CLOMIPRAMINE HYDROCHLORIDE
     Indication: DEPRESSION
     Dosage: 150 MG, UNK
     Route: 048
  2. PAROXETINE. [Concomitant]
     Active Substance: PAROXETINE
     Indication: DEPRESSION
     Dosage: 40 MG, UNK
     Route: 048
  3. DEPAMIDE [Concomitant]
     Active Substance: VALPROMIDE
     Indication: DEPRESSION
     Dosage: 1200 MG, UNK
     Route: 048
  4. BROMAZEPAM [Concomitant]
     Active Substance: BROMAZEPAM
     Indication: DEPRESSION
     Dosage: 4.5 MG, QD
     Route: 048
     Dates: start: 201604
  5. DEPAMIDE [Concomitant]
     Active Substance: VALPROMIDE
     Dosage: 600 MG, UNK
     Route: 048
  6. CLOMIPRAMINE HYDROCHLORIDE. [Suspect]
     Active Substance: CLOMIPRAMINE HYDROCHLORIDE
     Dosage: 150 MG, UNK
     Route: 048
  7. SELINCRO [Suspect]
     Active Substance: NALMEFENE HYDROCHLORIDE DIHYDRATE
     Indication: ALCOHOLISM
     Dosage: 18 MG, QD
     Route: 048
     Dates: start: 20170413
  8. DEPAMIDE [Concomitant]
     Active Substance: VALPROMIDE
     Dosage: UNK
     Route: 065

REACTIONS (3)
  - Hyperhidrosis [Recovered/Resolved]
  - Suicide attempt [Recovered/Resolved]
  - Dizziness [Recovered/Resolved]

NARRATIVE: CASE EVENT DATE: 20170503
